FAERS Safety Report 9983255 (Version 1)
Quarter: 2014Q1

REPORT INFORMATION
  Report Type: Report from Study
  Country: US (occurrence: US)
  Receive Date: 20140307
  Receipt Date: 20140307
  Transmission Date: 20141002
  Serious: No
  Sender: FDA-Public Use
  Company Number: US-ABBVIE-13P-163-1178297-00

PATIENT
  Age: 24 Year
  Sex: Male

DRUGS (2)
  1. HUMIRA [Suspect]
     Indication: COLITIS ULCERATIVE
     Dates: start: 20131004, end: 201311
  2. HUMIRA [Suspect]
     Dates: start: 20131121

REACTIONS (5)
  - Posture abnormal [Unknown]
  - Gait disturbance [Unknown]
  - Gastric disorder [Recovering/Resolving]
  - Drug ineffective [Unknown]
  - Pain [Unknown]
